FAERS Safety Report 24283821 (Version 1)
Quarter: 2024Q3

REPORT INFORMATION
  Report Type: Spontaneous
  Country: TR (occurrence: TR)
  Receive Date: 20240905
  Receipt Date: 20240905
  Transmission Date: 20241017
  Serious: Yes (Life-Threatening)
  Sender: ASTELLAS
  Company Number: TR-GILEAD-2024-0684883

PATIENT
  Age: 51 Year
  Sex: Female

DRUGS (3)
  1. AMBISOME [Suspect]
     Active Substance: AMPHOTERICIN B
     Indication: Product used for unknown indication
     Dosage: 150 MG, UNKNOWN FREQUENCY
     Route: 065
     Dates: start: 20240815, end: 20240815
  2. PROGAS [Concomitant]
     Indication: Product used for unknown indication
     Dosage: 40 MG, UNKNOWN FREQUENCY
     Route: 042
  3. TEKOSIT [Concomitant]
     Indication: Product used for unknown indication
     Dosage: 400 MG [4000 IU], UNKNOWN FREQUENCY
     Route: 042

REACTIONS (4)
  - Erythema [Recovered/Resolved]
  - Urticaria [Recovered/Resolved]
  - Dyspnoea [Recovered/Resolved]
  - Hypersensitivity [Unknown]

NARRATIVE: CASE EVENT DATE: 20240815
